FAERS Safety Report 6665218-6 (Version None)
Quarter: 2010Q1

REPORT INFORMATION
  Report Type: 
  Country: None (occurrence: None)
  Receive Date: 20100330
  Receipt Date: 20100316
  Transmission Date: 20100710
  Serious: Yes (Hospitalization)
  Sender: FDA-Public Use
  Company Number: 220006J10CAN

PATIENT
  Sex: Male

DRUGS (2)
  1. SAIZEN [Suspect]
     Indication: RENAL FAILURE CHRONIC
     Dosage: 2.5 MG, 6 IN 1 WEEKS
     Dates: start: 20100203, end: 20100101
  2. SAIZEN [Suspect]
     Indication: RENAL FAILURE CHRONIC
     Dosage: 2.5 MG, 6 IN 1 WEEKS
     Dates: start: 20100308

REACTIONS (2)
  - BACTERIAL TEST POSITIVE [None]
  - URINARY TRACT INFECTION [None]
